FAERS Safety Report 5799134-9 (Version None)
Quarter: 2008Q3

REPORT INFORMATION
  Report Type: 
  Country: None (occurrence: None)
  Receive Date: 20080702
  Receipt Date: 20080627
  Transmission Date: 20090109
  Serious: Yes (Other)
  Sender: FDA-Public Use
  Company Number: US-PFIZER INC-2008005814

PATIENT
  Sex: Female
  Weight: 80 kg

DRUGS (7)
  1. CELEBREX [Suspect]
     Indication: OSTEOARTHRITIS
  2. NEXIUM [Concomitant]
  3. SYNTHROID [Concomitant]
  4. LIPITOR [Concomitant]
  5. PREVACID [Concomitant]
  6. LEVOXYL [Concomitant]
  7. FLEXERIL [Concomitant]

REACTIONS (4)
  - BLINDNESS [None]
  - CEREBROVASCULAR ACCIDENT [None]
  - THYROIDECTOMY [None]
  - TYPE 2 DIABETES MELLITUS [None]
